FAERS Safety Report 18685917 (Version 1)
Quarter: 2020Q4

REPORT INFORMATION
  Report Type: Spontaneous
  Country: US (occurrence: US)
  Receive Date: 20201230
  Receipt Date: 20201230
  Transmission Date: 20210114
  Serious: No
  Sender: FDA-Public Use
  Company Number: US-BAYER-2020-287522

PATIENT

DRUGS (1)
  1. CLARITIN [Suspect]
     Active Substance: LORATADINE
     Indication: NUTRITIONAL SUPPLEMENTATION
     Dosage: 4 DF
     Route: 065

REACTIONS (2)
  - Expired product administered [Unknown]
  - Incorrect dose administered [Unknown]
